FAERS Safety Report 20422957 (Version 1)
Quarter: 2022Q1

REPORT INFORMATION
  Report Type: Spontaneous
  Country: US (occurrence: None)
  Receive Date: 20220203
  Receipt Date: 20220203
  Transmission Date: 20220423
  Serious: No
  Sender: FDA-Public Use
  Company Number: None

PATIENT
  Sex: Female

DRUGS (1)
  1. BUDESONIDE [Suspect]
     Active Substance: BUDESONIDE
     Dosage: OTHER QUANTITY : 3 CAPSULE(S);?FREQUENCY : DAILY;?
     Route: 048

REACTIONS (6)
  - Dizziness [None]
  - Fatigue [None]
  - Asthenia [None]
  - Flushing [None]
  - Headache [None]
  - Tremor [None]
